FAERS Safety Report 6267373-9 (Version None)
Quarter: 2009Q3

REPORT INFORMATION
  Report Type: 
  Country: None (occurrence: None)
  Receive Date: 20090714
  Receipt Date: 20090707
  Transmission Date: 20100115
  Serious: Yes (Other)
  Sender: FDA-Public Use
  Company Number: US-ASTRAZENECA-2009UW10581

PATIENT
  Age: 57 Year
  Sex: Female
  Weight: 72.6 kg

DRUGS (4)
  1. ARIMIDEX [Suspect]
     Indication: BREAST CANCER
     Route: 048
     Dates: start: 20080301
  2. XANAX [Concomitant]
  3. VYTORIN [Concomitant]
  4. PREDNISONE [Concomitant]

REACTIONS (5)
  - AGEUSIA [None]
  - ANOSMIA [None]
  - DIZZINESS [None]
  - HYPOAESTHESIA [None]
  - PAIN IN EXTREMITY [None]
